FAERS Safety Report 9682584 (Version 1)
Quarter: 2013Q4

REPORT INFORMATION
  Report Type: Spontaneous
  Country: NO (occurrence: NO)
  Receive Date: 20131112
  Receipt Date: 20131112
  Transmission Date: 20140711
  Serious: Yes (Life-Threatening, Hospitalization)
  Sender: FDA-Public Use
  Company Number: NO-UCBSA-102313

PATIENT
  Age: 60 Year
  Sex: Female

DRUGS (5)
  1. CIMZIA [Suspect]
     Indication: RHEUMATOID ARTHRITIS
     Route: 058
     Dates: start: 20100823, end: 20130906
  2. PREDNISOLON [Concomitant]
     Route: 048
     Dates: start: 2010
  3. CALCIGRAN FORTE [Concomitant]
     Dosage: 1000 MG CALCIUM, 800 IE VITAMIN D3, ONCE EVERY DAY
     Route: 048
     Dates: start: 2010
  4. METEX [Concomitant]
     Indication: RHEUMATOID ARTHRITIS
     Route: 058
     Dates: start: 2010, end: 20130906
  5. FOLSYRE NAF [Concomitant]
     Dosage: NOT THE DAY OF METEX ADMINISTRATION
     Route: 048
     Dates: start: 2006, end: 20130906

REACTIONS (1)
  - Infection [Recovering/Resolving]
